FAERS Safety Report 5099240-0 (Version None)
Quarter: 2006Q3

REPORT INFORMATION
  Report Type: 
  Country: None (occurrence: None)
  Receive Date: 20060731
  Receipt Date: 20050623
  Transmission Date: 20061208
  Serious: No
  Sender: FDA-Public Use
  Company Number: 215606

PATIENT
  Age: 61 Year
  Sex: Female

DRUGS (5)
  1. HERCEPTIN [Suspect]
     Dosage: SEE IMAGE
     Dates: start: 20050406
  2. HERCEPTIN [Suspect]
     Dosage: SEE IMAGE
     Dates: start: 20050413
  3. HERCEPTIN [Suspect]
     Dosage: SEE IMAGE
     Dates: start: 20050420
  4. HERCEPTIN [Suspect]
     Dosage: SEE IMAGE
     Dates: start: 20050427
  5. NAVELBINE [Concomitant]

REACTIONS (1)
  - RASH MACULAR [None]
